FAERS Safety Report 6179461-6 (Version None)
Quarter: 2009Q2

REPORT INFORMATION
  Report Type: 
  Country: None (occurrence: None)
  Receive Date: 20090501
  Receipt Date: 20090501
  Transmission Date: 20091009
  Serious: Yes (Other)
  Sender: FDA-Public Use
  Company Number: None

PATIENT
  Sex: Male

DRUGS (2)
  1. SINGULAIR [Suspect]
     Indication: ASTHMA PROPHYLAXIS
     Dosage: 4MG 1 PO
     Route: 048
     Dates: start: 20050301, end: 20090215
  2. SINGULAIR [Suspect]
     Dosage: 5MG 1 PO
     Route: 048
     Dates: start: 20090215, end: 20090315

REACTIONS (1)
  - ABNORMAL BEHAVIOUR [None]
